FAERS Safety Report 8575073-5 (Version None)
Quarter: 2012Q3

REPORT INFORMATION
  Report Type: 
  Country: None (occurrence: None)
  Receive Date: 20120807
  Receipt Date: 20120726
  Transmission Date: 20120928
  Serious: Yes (Hospitalization, Other)
  Sender: FDA-Public Use
  Company Number: US-BAYER-2011-011689

PATIENT
  Age: 33 Year
  Sex: Female
  Weight: 74.83 kg

DRUGS (15)
  1. IBUPROFEN [Concomitant]
  2. CEFTIN [Concomitant]
     Dosage: 500 MG
  3. ACETAMINOPHEN [Concomitant]
     Dosage: 650 MG
  4. ATIVAN [Concomitant]
     Indication: ANXIETY
     Dosage: 0.25 MG
  5. PROPOXYPHENE HCL [Concomitant]
  6. DOXYCYCLINE HCL [Concomitant]
     Dosage: 100 MG BID FOR 7 DAYS
  7. LEXAPRO [Concomitant]
     Indication: ANXIETY
  8. YASMIN [Suspect]
     Indication: CONTRACEPTION
     Dosage: UNK
     Dates: start: 20050305, end: 20080101
  9. LORAZEPAM [Concomitant]
  10. DROSPIRENONE AND ETHINYL ESTRADIOL [Suspect]
     Indication: CONTRACEPTION
     Dosage: UNK
     Dates: start: 20081013, end: 20090112
  11. YASMIN [Suspect]
     Indication: DYSMENORRHOEA
  12. ALBUTEROL [Concomitant]
  13. MULTI-VITAMINS [Concomitant]
     Indication: MEDICAL DIET
     Dosage: UNK
     Dates: start: 20070101
  14. ZITHROMAX [Concomitant]
  15. LEXAPRO [Concomitant]
     Indication: DEPRESSION
     Dosage: 10 MG

REACTIONS (10)
  - HIGH RISK PREGNANCY [None]
  - ANXIETY [None]
  - CHEST PAIN [None]
  - PAIN [None]
  - HAEMOPTYSIS [None]
  - PNEUMONIA [None]
  - PULMONARY EMBOLISM [None]
  - EMOTIONAL DISTRESS [None]
  - DEEP VEIN THROMBOSIS [None]
  - PULMONARY INFARCTION [None]
